FAERS Safety Report 20052337 (Version 1)
Quarter: 2021Q4

REPORT INFORMATION
  Report Type: Spontaneous
  Country: AU (occurrence: AU)
  Receive Date: 20211110
  Receipt Date: 20211110
  Transmission Date: 20220303
  Serious: Yes (Other)
  Sender: FDA-Public Use
  Company Number: AU-TEVA-2021-AU-1975635

PATIENT
  Age: 62 Year
  Sex: Male

DRUGS (3)
  1. RASAGILINE MESYLATE [Suspect]
     Active Substance: RASAGILINE MESYLATE
     Indication: Parkinson^s disease
     Route: 065
  2. PRAMIPEXOLE [Suspect]
     Active Substance: PRAMIPEXOLE
     Route: 065
  3. ROTIGOTINE [Suspect]
     Active Substance: ROTIGOTINE
     Dosage: PATCH WAS INITIALLY COMMENCED AT 2 MG, TITRATING SLOWLY UP TO 8 MG OVER SIX MONTHS
     Route: 065

REACTIONS (4)
  - Sudden onset of sleep [Unknown]
  - Nausea [Unknown]
  - Somnolence [Unknown]
  - Rash [Unknown]
